FAERS Safety Report 19952718 (Version 1)
Quarter: 2021Q4

REPORT INFORMATION
  Report Type: Spontaneous
  Country: US (occurrence: US)
  Receive Date: 20211012
  Receipt Date: 20211012
  Transmission Date: 20220303
  Serious: No
  Sender: FDA-Public Use
  Company Number: None

PATIENT
  Age: 55 Year
  Sex: Male
  Weight: 66 kg

DRUGS (2)
  1. BAMLANIVIMAB [Suspect]
     Active Substance: BAMLANIVIMAB
     Indication: COVID-19
     Dosage: ?          OTHER ROUTE:IV
     Route: 042
     Dates: start: 20211006, end: 20211006
  2. CASIRIVIMAB [Suspect]
     Active Substance: CASIRIVIMAB
     Dosage: ?          OTHER ROUTE:IV
     Route: 042
     Dates: start: 20211006, end: 20211006

REACTIONS (5)
  - Tachycardia [None]
  - Infusion related reaction [None]
  - Flushing [None]
  - Heart rate increased [None]
  - Blood pressure increased [None]

NARRATIVE: CASE EVENT DATE: 20211006
